FAERS Safety Report 11279797 (Version 1)
Quarter: 2015Q3

REPORT INFORMATION
  Report Type: Spontaneous
  Country: US (occurrence: None)
  Receive Date: 20150716
  Receipt Date: 20150716
  Transmission Date: 20151125
  Serious: Yes (Other)
  Sender: FDA-Public Use
  Company Number: None

PATIENT
  Age: 69 Year
  Sex: Female
  Weight: 54.43 kg

DRUGS (2)
  1. ADVAIR HFA [Suspect]
     Active Substance: FLUTICASONE PROPIONATE\SALMETEROL XINAFOATE
     Indication: COUGH
     Dosage: EVERY 12 HRS  12HRS
     Dates: start: 20150601, end: 20150614
  2. ADVAIR HFA [Suspect]
     Active Substance: FLUTICASONE PROPIONATE\SALMETEROL XINAFOATE
     Indication: RESPIRATORY DISORDER
     Dosage: EVERY 12 HRS  12HRS
     Dates: start: 20150601, end: 20150614

REACTIONS (8)
  - Rash macular [None]
  - Head banging [None]
  - Face injury [None]
  - Seizure [None]
  - Myalgia [None]
  - Movement disorder [None]
  - Arthralgia [None]
  - Head injury [None]

NARRATIVE: CASE EVENT DATE: 20150609
